FAERS Safety Report 21356639 (Version 2)
Quarter: 2022Q4

REPORT INFORMATION
  Report Type: Spontaneous
  Country: US (occurrence: US)
  Receive Date: 20220920
  Receipt Date: 20221230
  Transmission Date: 20230113
  Serious: Yes (Other)
  Sender: FDA-Public Use
  Company Number: US-PFIZER INC-PV202200059327

PATIENT
  Age: 64 Year
  Sex: Female
  Weight: 92.7 kg

DRUGS (23)
  1. INFLECTRA [Suspect]
     Active Substance: INFLIXIMAB-DYYB
     Dosage: 300 MG (98 WEEKS)
     Route: 065
     Dates: start: 202203, end: 2022
  2. METHOTREXATE SODIUM [Suspect]
     Active Substance: METHOTREXATE SODIUM
     Dosage: UNK
     Route: 065
  3. PLAQUENIL [Suspect]
     Active Substance: HYDROXYCHLOROQUINE SULFATE
     Dosage: UNK
     Route: 065
  4. TYLENOL [Concomitant]
     Active Substance: ACETAMINOPHEN
     Indication: Pain
     Dosage: UNK, 4X/DAY
     Route: 048
  5. ZOSTRIX [CAPSAICIN] [Concomitant]
     Indication: Pain
     Dosage: UNK, AS NEEDED (1 APP, PRN, 56.6 GM (3 IN 1 D))
     Route: 061
  6. RESTASIS [Concomitant]
     Active Substance: CYCLOSPORINE
     Indication: Dry eye
     Dosage: UNK
     Route: 047
  7. CYMBALTA [Concomitant]
     Active Substance: DULOXETINE HYDROCHLORIDE
     Dosage: 60 MG, 1X/DAY
     Route: 048
  8. FUROSEMIDE [Concomitant]
     Active Substance: FUROSEMIDE
     Dosage: 20 MG, 1X/DAY
     Route: 048
  9. IBUPROFEN [Concomitant]
     Active Substance: IBUPROFEN
     Dosage: UNK, AS NEEDED (4 EVERY 4-6 HOURS AS NEEDED)
     Route: 048
  10. METHIMAZOLE [Concomitant]
     Active Substance: METHIMAZOLE
     Dosage: 1 IN 8HR
     Route: 048
  11. METOPROLOL [Concomitant]
     Active Substance: METOPROLOL
     Dosage: 100 MG, 1X/DAY
     Route: 048
  12. PANTOPRAZOLE [Concomitant]
     Active Substance: PANTOPRAZOLE
     Dosage: 40 MG, DAILY
  13. PREDNISOLONE [Concomitant]
     Active Substance: PREDNISOLONE
     Dosage: UNK, 1X/DAY (1 DROP)
     Route: 047
  14. PREDNISONE [Concomitant]
     Active Substance: PREDNISONE
     Dosage: 3 TABS DAILY X 3 DAYS; 2 TABS DAILY X 3 DAYS, 1 TAB DAILY X 3 DAYS, 1/2 TAB
     Route: 048
  15. SERTRALINE [Concomitant]
     Active Substance: SERTRALINE HYDROCHLORIDE
     Dosage: 50 MG
     Route: 048
  16. ACETAMINOPHEN [Concomitant]
     Active Substance: ACETAMINOPHEN
     Dosage: 1000 MG
     Route: 048
     Dates: start: 20220714, end: 20220714
  17. ACETAMINOPHEN [Concomitant]
     Active Substance: ACETAMINOPHEN
     Dosage: 1000 MG
     Route: 048
     Dates: start: 20220519, end: 20220519
  18. DEXILANT [Concomitant]
     Active Substance: DEXLANSOPRAZOLE
     Dosage: 60 MG, 1X/DAY
     Route: 048
  19. BENADRYL [Concomitant]
     Active Substance: DIPHENHYDRAMINE HYDROCHLORIDE
     Dosage: GIVE PRIOR TO THE START OF INFUSION
     Route: 048
     Dates: start: 20220714, end: 20220714
  20. BENADRYL [Concomitant]
     Active Substance: DIPHENHYDRAMINE HYDROCHLORIDE
     Dosage: GIVE PRIOR TO THE START OF INFUSION
     Route: 048
     Dates: start: 20220519, end: 20220519
  21. DIPHENHYDRAMINE [Concomitant]
     Active Substance: DIPHENHYDRAMINE
     Dosage: 50 MG
     Route: 042
     Dates: start: 20220714, end: 20220714
  22. GABAPENTIN [Concomitant]
     Active Substance: GABAPENTIN
     Dosage: 400 MG (90 CAPSULES (3 IN 1D))
     Route: 048
  23. IBUPROFEN [Concomitant]
     Active Substance: IBUPROFEN
     Dosage: 800 MG, 2X/DAY
     Route: 048

REACTIONS (21)
  - Dizziness [Recovered/Resolved]
  - Drug intolerance [Unknown]
  - Fatigue [Unknown]
  - Flushing [Recovered/Resolved]
  - Hyperhidrosis [Recovered/Resolved]
  - Wheezing [Unknown]
  - Myalgia [Unknown]
  - Muscular weakness [Unknown]
  - Dyspnoea [Recovered/Resolved]
  - Chest pain [Recovered/Resolved]
  - Back pain [Recovered/Resolved]
  - Nausea [Recovered/Resolved]
  - Pruritus [Recovered/Resolved]
  - Cough [Unknown]
  - Musculoskeletal stiffness [Unknown]
  - Back pain [Unknown]
  - Synovitis [Unknown]
  - Herpes zoster [Unknown]
  - Arthroscopic surgery [Unknown]
  - Rotator cuff repair [Unknown]
  - Bronchitis [Unknown]

NARRATIVE: CASE EVENT DATE: 20191001
